FAERS Safety Report 8910742 (Version 1)
Quarter: 2012Q4

REPORT INFORMATION
  Report Type: 
  Country: FR (occurrence: FR)
  Receive Date: 20121116
  Receipt Date: 20121116
  Transmission Date: 20130627
  Serious: Yes (Hospitalization)
  Sender: FDA-Public Use
  Company Number: FR-PFIZER INC-2012283905

PATIENT
  Age: 18 Month
  Sex: Male

DRUGS (1)
  1. ADVIL ENFANTS ET NOURRISSONS [Suspect]
     Indication: FEVER
     Dosage: UNK

REACTIONS (2)
  - Lip oedema [Unknown]
  - Rash [Unknown]
